FAERS Safety Report 8966627 (Version 1)
Quarter: 2012Q4

REPORT INFORMATION
  Report Type: 
  Country: US (occurrence: US)
  Receive Date: 20121217
  Receipt Date: 20121217
  Transmission Date: 20130627
  Serious: Yes (Hospitalization)
  Sender: FDA-Public Use
  Company Number: US-FRI-1000040866

PATIENT
  Age: 73 Year
  Sex: Female
  Weight: 113 kg

DRUGS (21)
  1. VIIBRYD [Suspect]
     Dosage: 10-40 mg
     Dates: start: 20120822
  2. BUPROPION [Suspect]
     Dosage: 300mg
  3. BUSPIRONE [Suspect]
     Dosage: 4.5 dosage forms
  4. ALPRAZOLAM [Suspect]
     Dosage: 0.75mg
  5. TEMAZEPAM [Suspect]
     Dosage: 30 mg
  6. RISPERIDONE [Suspect]
     Dosage: 1mg
  7. TRAZODONE [Suspect]
     Dates: end: 20120918
  8. AMBIEN [Suspect]
  9. PREDNISONE [Concomitant]
     Dosage: 10mg
  10. WARFARIN [Concomitant]
     Dosage: 3mg
  11. LASIX [Concomitant]
     Dosage: 80mg
  12. SPIRONOLACTONE [Concomitant]
     Dosage: 50mg
  13. KCL [Concomitant]
     Dosage: 40mEq
  14. GLIMEPIRIDE [Concomitant]
     Dosage: 8mg
  15. OMEPRAZOLE [Concomitant]
     Dosage: 20mg
  16. METOPROLOL ER [Concomitant]
     Dosage: 80mg
  17. RANITIDINE [Concomitant]
     Dosage: 300mg
  18. SIMVASTATIN [Concomitant]
     Dosage: 40mg
  19. FISH OIL [Concomitant]
     Dosage: 1200mg
  20. DSS [Concomitant]
  21. HUMULIN [Concomitant]
     Dosage: 20 units and sliding scale

REACTIONS (14)
  - Confabulation [Recovering/Resolving]
  - Confusional state [Recovering/Resolving]
  - Aggression [Recovering/Resolving]
  - Mydriasis [Recovering/Resolving]
  - Mucosal dryness [Recovering/Resolving]
  - Flushing [Recovering/Resolving]
  - Mental status changes [Recovering/Resolving]
  - Agitation [Recovering/Resolving]
  - Tremor [Recovering/Resolving]
  - Hallucination [Recovering/Resolving]
  - Fall [Recovering/Resolving]
  - Blood potassium increased [None]
  - Blood glucose increased [None]
  - Blood urea increased [None]
